FAERS Safety Report 23475919 (Version 1)
Quarter: 2024Q1

REPORT INFORMATION
  Report Type: Report from Study
  Country: US (occurrence: US)
  Receive Date: 20240204
  Receipt Date: 20240204
  Transmission Date: 20240410
  Serious: No
  Sender: FDA-Public Use
  Company Number: US-EXELIXIS-CABO-23061395

PATIENT
  Sex: Male

DRUGS (22)
  1. CABOMETYX [Suspect]
     Active Substance: CABOZANTINIB S-MALATE
     Indication: Renal cancer
     Dosage: 40 MG, QD
     Route: 048
  2. CABOMETYX [Suspect]
     Active Substance: CABOZANTINIB S-MALATE
     Dosage: 40 MG, QD
     Route: 048
  3. NORVASC [Concomitant]
     Active Substance: AMLODIPINE BESYLATE
  4. ASPIRIN [Concomitant]
     Active Substance: ASPIRIN
  5. LIPITOR [Concomitant]
     Active Substance: ATORVASTATIN CALCIUM
  6. FARXIGA [Concomitant]
     Active Substance: DAPAGLIFLOZIN PROPANEDIOL
  7. TRULICITY [Concomitant]
     Active Substance: DULAGLUTIDE
  8. GLUCAGON [Concomitant]
     Active Substance: GLUCAGON\GLUCAGON HYDROCHLORIDE\WATER
  9. HYDROCHLOROTHIAZIDE [Concomitant]
     Active Substance: HYDROCHLOROTHIAZIDE
  10. LANTUS [Concomitant]
     Active Substance: INSULIN GLARGINE
  11. LOPERAMIDE [Concomitant]
     Active Substance: LOPERAMIDE
  12. METFORMIN [Concomitant]
     Active Substance: METFORMIN HYDROCHLORIDE
  13. REGLAN [Concomitant]
     Active Substance: METOCLOPRAMIDE HYDROCHLORIDE
  14. METOPROLOL TARTRATE [Concomitant]
     Active Substance: METOPROLOL TARTRATE
  15. ZOFRAN [Concomitant]
     Active Substance: ONDANSETRON HYDROCHLORIDE
  16. FLOMAX [Concomitant]
     Active Substance: TAMSULOSIN HYDROCHLORIDE
  17. VALSARTAN [Concomitant]
     Active Substance: VALSARTAN
  18. BENADRYL [Concomitant]
     Active Substance: DIPHENHYDRAMINE HYDROCHLORIDE
  19. FAMOTIDINE [Concomitant]
     Active Substance: FAMOTIDINE
  20. HYDROCORTISONE [Concomitant]
     Active Substance: HYDROCORTISONE
  21. LORAZEPAM [Concomitant]
     Active Substance: LORAZEPAM
  22. MEPERIDINE [Concomitant]
     Active Substance: MEPERIDINE

REACTIONS (4)
  - Adverse drug reaction [Unknown]
  - Glycosylated haemoglobin increased [Unknown]
  - Arthralgia [Unknown]
  - Blood pressure increased [Recovering/Resolving]
